FAERS Safety Report 20292064 (Version 2)
Quarter: 2022Q2

REPORT INFORMATION
  Report Type: Spontaneous
  Country: US (occurrence: US)
  Receive Date: 20220104
  Receipt Date: 20220509
  Transmission Date: 20220721
  Serious: No
  Sender: FDA-Public Use
  Company Number: US-PFIZER INC-2018440853

PATIENT
  Age: 40 Year
  Sex: Female

DRUGS (2)
  1. XELJANZ XR [Suspect]
     Active Substance: TOFACITINIB CITRATE
     Indication: Rheumatoid arthritis
     Dosage: 11 MG, DAILY [USING XELJANZ XR FOR 1 + 1/2 YEARS]
     Route: 048
  2. XELJANZ XR [Suspect]
     Active Substance: TOFACITINIB CITRATE
     Indication: Acromegaly
     Dosage: 11 MG, DAILY
     Route: 048
     Dates: start: 2017

REACTIONS (4)
  - Product dose omission issue [Unknown]
  - Gait disturbance [Unknown]
  - Memory impairment [Unknown]
  - Weight increased [Unknown]
